FAERS Safety Report 22855659 (Version 12)
Quarter: 2024Q1

REPORT INFORMATION
  Report Type: Spontaneous
  Country: NL (occurrence: NL)
  Receive Date: 20230823
  Receipt Date: 20240311
  Transmission Date: 20240409
  Serious: Yes (Other)
  Sender: FDA-Public Use
  Company Number: NL-CELLTRION HEALTHCARE HUNGARY KFT-2023NL014353

PATIENT

DRUGS (12)
  1. PREDNISONE [Interacting]
     Active Substance: PREDNISONE
     Indication: Non-Hodgkin^s lymphoma
     Dosage: UNK
     Route: 064
  2. DOXORUBICIN [Interacting]
     Active Substance: DOXORUBICIN
     Indication: Non-Hodgkin^s lymphoma
     Dosage: UNK
     Route: 064
  3. DOXORUBICIN [Interacting]
     Active Substance: DOXORUBICIN
     Indication: B-cell lymphoma
  4. VINCRISTINE [Interacting]
     Active Substance: VINCRISTINE
     Indication: Non-Hodgkin^s lymphoma
     Dosage: UNK
     Route: 064
  5. RITUXIMAB [Interacting]
     Active Substance: RITUXIMAB
     Indication: Non-Hodgkin^s lymphoma
     Dosage: RTX CONCENTRATION: {2WK: 81 MCG/ML
     Route: 064
  6. RITUXIMAB [Interacting]
     Active Substance: RITUXIMAB
     Dosage: RTX CONCENTRATION: 4-6 MO: 0.4 MCG/ML
     Route: 064
  7. RITUXIMAB [Interacting]
     Active Substance: RITUXIMAB
     Dosage: RTX CONCENTRATION: 1-3 MO: 2.4 MCG/ML
     Route: 064
  8. RITUXIMAB [Interacting]
     Active Substance: RITUXIMAB
     Dosage: UNK
     Route: 064
  9. PNEUMOCOCCAL VACCINE POLYVALENT [Interacting]
     Active Substance: PNEUMOCOCCAL VACCINE POLYVALENT
     Indication: Prophylaxis
     Dosage: UNK
     Route: 065
  10. REMICADE [Interacting]
     Active Substance: INFLIXIMAB
     Indication: Crohn^s disease
     Dosage: 0.5 MCG/ML AT 3 MONTHS OF AGE
     Route: 065
  11. CYCLOPHOSPHAMIDE [Interacting]
     Active Substance: CYCLOPHOSPHAMIDE
     Indication: Non-Hodgkin^s lymphoma
     Dosage: UNK
     Route: 064
  12. COTRIMOXAZOLE [Concomitant]
     Active Substance: SULFAMETHOXAZOLE\TRIMETHOPRIM
     Indication: Prophylaxis
     Dosage: UNK
     Route: 064

REACTIONS (8)
  - Neutropenia [Recovered/Resolved]
  - Hypogammaglobulinaemia [Recovered/Resolved]
  - Premature baby [Recovered/Resolved]
  - Lymphopenia [Recovered/Resolved]
  - Vaccination failure [Unknown]
  - Vaccine interaction [Unknown]
  - Intentional product use issue [Unknown]
  - Foetal exposure during pregnancy [Recovered/Resolved]
